FAERS Safety Report 4962639-4 (Version None)
Quarter: 2006Q1

REPORT INFORMATION
  Report Type: 
  Country: None (occurrence: None)
  Receive Date: 20060201
  Receipt Date: 20051104
  Transmission Date: 20060701
  Serious: No
  Sender: FDA-Public Use
  Company Number: 2005PV004056

PATIENT
  Age: 66 Year
  Sex: Female
  Weight: 87.9978 kg

DRUGS (3)
  1. BYETTA [Suspect]
     Indication: DIABETES MELLITUS NON-INSULIN-DEPENDENT
     Dosage: 5 MCG;BID;SC
     Route: 058
     Dates: start: 20051102
  2. GLUCOTROL [Concomitant]
  3. GLUCOPHAGE [Concomitant]

REACTIONS (6)
  - ACCIDENTAL NEEDLE STICK [None]
  - DECREASED APPETITE [None]
  - ENERGY INCREASED [None]
  - THERAPEUTIC RESPONSE UNEXPECTED [None]
  - VISION BLURRED [None]
  - WEIGHT DECREASED [None]
